FAERS Safety Report 21303264 (Version 3)
Quarter: 2022Q4

REPORT INFORMATION
  Report Type: Spontaneous
  Country: US (occurrence: US)
  Receive Date: 20220907
  Receipt Date: 20221222
  Transmission Date: 20230113
  Serious: No
  Sender: FDA-Public Use
  Company Number: US-ELI_LILLY_AND_COMPANY-US202209003023

PATIENT
  Age: 75 Year
  Sex: Female

DRUGS (5)
  1. FORTEO [Suspect]
     Active Substance: TERIPARATIDE
     Indication: Osteoporosis
     Dosage: UNK UNK, UNKNOWN
     Route: 065
     Dates: start: 20210210
  2. FORTEO [Suspect]
     Active Substance: TERIPARATIDE
     Indication: Osteoporosis
     Dosage: UNK UNK, UNKNOWN
     Route: 065
     Dates: start: 20210210
  3. FORTEO [Suspect]
     Active Substance: TERIPARATIDE
     Dosage: UNK UNK, UNKNOWN
     Route: 065
     Dates: start: 20220615
  4. FORTEO [Suspect]
     Active Substance: TERIPARATIDE
     Dosage: UNK UNK, UNKNOWN
     Route: 065
     Dates: start: 20220615
  5. COVID-19 VACCINE NOS [Suspect]
     Active Substance: COVID-19 VACCINE NOS
     Indication: Product used for unknown indication
     Dosage: UNK UNK, UNKNOWN
     Route: 065

REACTIONS (8)
  - Product storage error [Unknown]
  - Accidental underdose [Unknown]
  - Illness [Recovered/Resolved]
  - Injection site bruising [Unknown]
  - Injection site bruising [Recovered/Resolved]
  - Nausea [Unknown]
  - Dizziness [Unknown]
  - Insomnia [Unknown]

NARRATIVE: CASE EVENT DATE: 20220801
